FAERS Safety Report 9192805 (Version 2)
Quarter: 2013Q4

REPORT INFORMATION
  Report Type: Spontaneous
  Country: FR (occurrence: FR)
  Receive Date: 20130327
  Receipt Date: 20131009
  Transmission Date: 20140711
  Serious: Yes (Other)
  Sender: FDA-Public Use
  Company Number: FR-PFIZER INC-2013092520

PATIENT
  Age: 62 Year
  Sex: Female

DRUGS (10)
  1. REVATIO [Suspect]
     Indication: PULMONARY ARTERIAL HYPERTENSION
     Dosage: 3 DOSAGE FORMS A DAY
     Route: 048
     Dates: start: 20120220, end: 20120227
  2. CERIS [Concomitant]
     Dosage: UNK
  3. KREDEX [Concomitant]
     Dosage: UNK
  4. COUMADINE [Concomitant]
     Dosage: UNK
  5. CORDARONE [Concomitant]
     Dosage: UNK
  6. LEVOTHYROX [Concomitant]
     Dosage: UNK
  7. BURINEX [Concomitant]
     Dosage: UNK
  8. LAROXYL ROCHE [Concomitant]
     Dosage: UNK
  9. DIFFU K [Concomitant]
     Dosage: UNK
  10. RENAGEL [Concomitant]
     Dosage: UNK

REACTIONS (1)
  - Face oedema [Recovered/Resolved]
